FAERS Safety Report 23853544 (Version 1)
Quarter: 2024Q2

REPORT INFORMATION
  Report Type: Report from Study
  Country: GB (occurrence: GB)
  Receive Date: 20240514
  Receipt Date: 20240514
  Transmission Date: 20240715
  Serious: Yes (Hospitalization, Other)
  Sender: FDA-Public Use
  Company Number: GB-TAKEDA-2024TUS046395

PATIENT
  Sex: Female

DRUGS (2)
  1. VEDOLIZUMAB [Suspect]
     Active Substance: VEDOLIZUMAB
     Indication: Colitis ulcerative
     Dosage: 108 MILLIGRAM
     Route: 058
     Dates: start: 202404
  2. VEDOLIZUMAB [Suspect]
     Active Substance: VEDOLIZUMAB
     Indication: Colitis ulcerative
     Dosage: 108 MILLIGRAM
     Route: 058
     Dates: start: 202404

REACTIONS (2)
  - Haematemesis [Unknown]
  - Psychotic disorder [Unknown]
